FAERS Safety Report 7864782-9 (Version None)
Quarter: 2011Q4

REPORT INFORMATION
  Report Type: 
  Country: None (occurrence: None)
  Receive Date: 20111028
  Receipt Date: 20110113
  Transmission Date: 20120403
  Serious: No
  Sender: FDA-Public Use
  Company Number: US-GLAXOSMITHKLINE-A0714959A

PATIENT
  Age: 63 Year
  Sex: Female

DRUGS (6)
  1. COMBIVENT [Concomitant]
  2. CARTIA XT [Concomitant]
  3. PROZAC [Concomitant]
  4. ASPIRIN [Concomitant]
  5. ADVAIR DISKUS 100/50 [Suspect]
     Indication: EMPHYSEMA
     Dosage: 1PUFF TWICE PER DAY
     Route: 055
     Dates: start: 20040101
  6. AMLODIPINE [Concomitant]

REACTIONS (2)
  - DYSPNOEA [None]
  - PRODUCT QUALITY ISSUE [None]
